FAERS Safety Report 6535013-7 (Version None)
Quarter: 2010Q1

REPORT INFORMATION
  Report Type: 
  Country: None (occurrence: None)
  Receive Date: 20100111
  Receipt Date: 20100111
  Transmission Date: 20100710
  Serious: No
  Sender: FDA-Public Use
  Company Number: None

PATIENT
  Age: 44 Year
  Sex: Female
  Weight: 54.4316 kg

DRUGS (3)
  1. CELEBREX [Suspect]
     Indication: BACK PAIN
     Dosage: 200MG DAILY PO
     Route: 048
     Dates: start: 20091130, end: 20100108
  2. PERCOCET QD [Concomitant]
  3. FLEXERIL QD [Concomitant]

REACTIONS (1)
  - EPISTAXIS [None]
